FAERS Safety Report 10639812 (Version 2)
Quarter: 2016Q1

REPORT INFORMATION
  Report Type: Spontaneous
  Country: GB (occurrence: GB)
  Receive Date: 20141209
  Receipt Date: 20160219
  Transmission Date: 20160525
  Serious: Yes (Death)
  Sender: FDA-Public Use
  Company Number: GB-ROCHE-1504449

PATIENT
  Age: 38 Year
  Sex: Female

DRUGS (1)
  1. TAMIFLU [Suspect]
     Active Substance: OSELTAMIVIR PHOSPHATE
     Indication: INFLUENZA
     Dosage: (USUALLY 5 DAYS TREATMENT)
     Route: 048
     Dates: start: 20100110, end: 20100114

REACTIONS (2)
  - Maternal exposure during pregnancy [Unknown]
  - Pneumonia aspiration [Fatal]

NARRATIVE: CASE EVENT DATE: 20100110
